FAERS Safety Report 16735740 (Version 1)
Quarter: 2019Q3

REPORT INFORMATION
  Report Type: Spontaneous
  Country: US (occurrence: US)
  Receive Date: 20190823
  Receipt Date: 20190823
  Transmission Date: 20191005
  Serious: No
  Sender: FDA-Public Use
  Company Number: US-PFIZER INC-2019359543

PATIENT
  Age: 56 Year
  Sex: Female

DRUGS (7)
  1. NEURONTIN [Suspect]
     Active Substance: GABAPENTIN
     Dosage: 900 MG, 3X/DAY
     Dates: end: 201901
  2. NEURONTIN [Suspect]
     Active Substance: GABAPENTIN
     Dosage: 600 MG, 1X/DAY (TWICE AT NIGHT)
  3. NEURONTIN [Suspect]
     Active Substance: GABAPENTIN
     Dosage: 300 MG, 3X/DAY
  4. COUMADIN [Concomitant]
     Active Substance: WARFARIN SODIUM
     Dosage: 4.5 MG, 2X/WEEK
  5. NEURONTIN [Suspect]
     Active Substance: GABAPENTIN
     Indication: FIBROMYALGIA
     Dosage: 1500 MG, DAILY (TWO CAPSULES IN THE MORNING, ONE IN THE AFTERNOON, AND TWO AT NIGHT)
  6. COUMADIN [Concomitant]
     Active Substance: WARFARIN SODIUM
     Indication: ANTIPHOSPHOLIPID SYNDROME
     Dosage: 3 MG, UNK (FOUR TIMES A WEEK)
  7. NEURONTIN [Suspect]
     Active Substance: GABAPENTIN
     Dosage: 900 MG, 2X/DAY

REACTIONS (3)
  - Off label use [Unknown]
  - Speech disorder [Unknown]
  - Drug ineffective for unapproved indication [Unknown]
